FAERS Safety Report 6803803-9 (Version None)
Quarter: 2010Q2

REPORT INFORMATION
  Report Type: 
  Country: None (occurrence: None)
  Receive Date: 20100628
  Receipt Date: 20100616
  Transmission Date: 20101027
  Serious: Yes (Other)
  Sender: FDA-Public Use
  Company Number: FR-GILEAD-2010-0029942

PATIENT
  Sex: Male
  Weight: 2.98 kg

DRUGS (4)
  1. VIREAD [Suspect]
     Indication: HIV INFECTION
     Route: 064
  2. KALETRA [Concomitant]
     Route: 064
  3. ZIAGEN [Concomitant]
     Route: 064
  4. CARDENSIEL [Concomitant]
     Route: 064

REACTIONS (1)
  - HYPOGLYCAEMIA [None]
